FAERS Safety Report 4496376-X (Version None)
Quarter: 2004Q4

REPORT INFORMATION
  Report Type: 
  Country: None (occurrence: None)
  Receive Date: 20041108
  Receipt Date: 20041108
  Transmission Date: 20050328
  Serious: Yes (Life-Threatening)
  Sender: FDA-Public Use
  Company Number: None

PATIENT
  Age: 54 Year
  Sex: Female
  Weight: 70.3075 kg

DRUGS (1)
  1. CLONIDINE [Suspect]
     Indication: HOT FLUSH
     Dosage: 1 DAILY ORAL
     Route: 048
     Dates: start: 20041102, end: 20041106

REACTIONS (1)
  - IMPAIRED DRIVING ABILITY [None]
